FAERS Safety Report 22108443 (Version 1)
Quarter: 2023Q1

REPORT INFORMATION
  Report Type: Spontaneous
  Country: DE (occurrence: DE)
  Receive Date: 20230317
  Receipt Date: 20230317
  Transmission Date: 20230418
  Serious: Yes (Life-Threatening, Hospitalization)
  Sender: FDA-Public Use
  Company Number: None

PATIENT
  Age: 35 Year
  Sex: Male
  Weight: 115 kg

DRUGS (2)
  1. DEVICE [Suspect]
     Active Substance: DEVICE
     Indication: Dermatitis
  2. TRALOKINUMAB [Suspect]
     Active Substance: TRALOKINUMAB
     Indication: Dermatitis
     Dosage: 150 DOSAGE FORMS
     Dates: start: 202205, end: 20221223

REACTIONS (6)
  - Pneumonia pneumococcal [Unknown]
  - Respiratory failure [Unknown]
  - Pneumonia pneumococcal [Unknown]
  - Hypoxia [Unknown]
  - Respiratory failure [Unknown]
  - Hypoxia [Unknown]

NARRATIVE: CASE EVENT DATE: 20230101
